FAERS Safety Report 15401619 (Version 1)
Quarter: 2018Q3

REPORT INFORMATION
  Report Type: Spontaneous
  Country: US (occurrence: US)
  Receive Date: 20180914
  Receipt Date: 20180914
  Transmission Date: 20181010
  Serious: Yes (Life-Threatening, Hospitalization, Disabling)
  Sender: FDA-Public Use
  Company Number: None

PATIENT
  Age: 48 Year
  Sex: Female
  Weight: 108 kg

DRUGS (7)
  1. STELARA [Suspect]
     Active Substance: USTEKINUMAB
     Indication: CROHN^S DISEASE
     Dosage: ?          OTHER FREQUENCY:EVERY 8 WEEKS;?
     Route: 058
  2. 100MG OF WELLBUTRIN BID [Concomitant]
  3. VITAMINS (VIT. C) [Concomitant]
  4. 20MG? OF OMEPRAZOLE QD [Concomitant]
  5. HUMIRA ? D/C^ED PRIOR TO STARTING ON STELARA OVER A YEAR AGO [Concomitant]
  6. 1.25G OF LIALDA BID [Concomitant]
  7. 175MCG OF SYNTHROID QD FOR YEARS [Concomitant]

REACTIONS (2)
  - Paralysis [None]
  - Myelitis transverse [None]

NARRATIVE: CASE EVENT DATE: 20180821
